FAERS Safety Report 19692281 (Version 1)
Quarter: 2021Q3

REPORT INFORMATION
  Report Type: Spontaneous
  Country: DE (occurrence: DE)
  Receive Date: 20210812
  Receipt Date: 20210812
  Transmission Date: 20211014
  Serious: Yes (Hospitalization, Other)
  Sender: FDA-Public Use
  Company Number: DE-SA-2021SA263679

PATIENT
  Age: 77 Year
  Sex: Male
  Weight: 82 kg

DRUGS (11)
  1. INSULIN GLARGINE [Suspect]
     Active Substance: INSULIN GLARGINE
     Dosage: 28 IE, 28?0?0?0
     Route: 065
  2. PHENPROCOUMON [Concomitant]
     Active Substance: PHENPROCOUMON
     Dosage: 3 MG, SCHEMA
     Route: 065
  3. METFORMIN HYDROCHLORIDE. [Suspect]
     Active Substance: METFORMIN HYDROCHLORIDE
     Dosage: 500 MG, 1?0?1?0
     Route: 065
  4. PANCREATIN [Concomitant]
     Active Substance: PANCRELIPASE
     Dosage: 25000 IE, 1?1?1?0
     Route: 065
  5. COLECALCIFEROL [Concomitant]
     Active Substance: CHOLECALCIFEROL
     Dosage: 20000 IE, SCHEMA
     Route: 065
  6. TAMSULOSIN [Concomitant]
     Active Substance: TAMSULOSIN
     Dosage: 0.4 MG, 0?0?1?0
     Route: 065
  7. PANTOPRAZOLUM [Concomitant]
     Active Substance: PANTOPRAZOLE
     Dosage: 40 MG, 1?0?0?0
     Route: 065
  8. LEVOTHYROXINUM NATRICUM [Concomitant]
     Dosage: 100|100 MG, 1?0?0?0
     Route: 065
  9. NALOXONE;OXYCODONE [Concomitant]
     Active Substance: NALOXONE HYDROCHLORIDE\OXYCODONE HYDROCHLORIDE
     Dosage: 10|20 MG, 0?0?1?0
     Route: 065
  10. ROSUVASTATIN. [Concomitant]
     Active Substance: ROSUVASTATIN
     Dosage: 5 MG, 0?0?1?0
     Route: 065
  11. PREGABALIN. [Concomitant]
     Active Substance: PREGABALIN
     Dosage: 150 MG, 1?0?1?0
     Route: 065

REACTIONS (5)
  - General physical health deterioration [Unknown]
  - Renal impairment [Unknown]
  - Dizziness [Unknown]
  - Hypotension [Unknown]
  - Hyperglycaemia [Unknown]
